FAERS Safety Report 9392267 (Version 2)
Quarter: 2013Q3

REPORT INFORMATION
  Report Type: Report from Study
  Country: FR (occurrence: FR)
  Receive Date: 20130710
  Receipt Date: 20130808
  Transmission Date: 20140515
  Serious: Yes (Other)
  Sender: FDA-Public Use
  Company Number: FR-ROCHE-1244615

PATIENT
  Age: 67 Year
  Sex: Male
  Weight: 75 kg

DRUGS (5)
  1. ZELBORAF [Suspect]
     Indication: NEOPLASM MALIGNANT
     Route: 048
     Dates: start: 20130314, end: 20130414
  2. RASILEZ HCT [Concomitant]
     Indication: HYPERTENSION
     Dosage: STRENGTH: 300/12.5MG
     Route: 048
     Dates: start: 20120229
  3. METFORMIN [Concomitant]
     Indication: TYPE 2 DIABETES MELLITUS
     Route: 048
     Dates: start: 20120229
  4. KALEORID [Concomitant]
     Indication: BLOOD POTASSIUM DECREASED
     Route: 048
  5. ESOMEPRAZOLE [Concomitant]
     Indication: PROPHYLAXIS AGAINST GASTROINTESTINAL ULCER
     Route: 048
     Dates: start: 20120229

REACTIONS (2)
  - Asthenia [Recovered/Resolved]
  - Dehydration [Recovered/Resolved]
